FAERS Safety Report 5237472-9 (Version None)
Quarter: 2007Q1

REPORT INFORMATION
  Report Type: 
  Country: None (occurrence: None)
  Receive Date: 20070213
  Receipt Date: 20070201
  Transmission Date: 20070707
  Serious: Yes (Death)
  Sender: FDA-Public Use
  Company Number: HU-ELI_LILLY_AND_COMPANY-HU200702000077

PATIENT
  Age: 76 Year
  Sex: Male

DRUGS (5)
  1. HUMULIN 70/30 [Suspect]
     Indication: DIABETES MELLITUS
     Dosage: UNK, UNKNOWN
     Route: 065
  2. ADIMET [Concomitant]
     Indication: DIABETES MELLITUS
  3. EDNYT [Concomitant]
     Indication: HYPERTENSION
  4. NORVASC [Concomitant]
     Indication: HYPERTENSION
  5. RENITEC [Concomitant]
     Indication: HYPERTENSION

REACTIONS (2)
  - CARDIOPULMONARY FAILURE [None]
  - LUNG CANCER METASTATIC [None]
